FAERS Safety Report 5601114-0 (Version None)
Quarter: 2008Q1

REPORT INFORMATION
  Report Type: 
  Country: None (occurrence: None)
  Receive Date: 20080108
  Receipt Date: 20070213
  Transmission Date: 20080703
  Serious: Yes (Hospitalization, Other)
  Sender: FDA-Public Use
  Company Number: PERC20070011

PATIENT
  Age: 44 Year
  Sex: Female
  Weight: 102 kg

DRUGS (11)
  1. PERCOCET [Suspect]
     Indication: BACK PAIN
     Dates: start: 20050623
  2. OXYCONTIN [Suspect]
     Indication: BACK PAIN
     Dosage: 20 MG, 1 IN 1 D, PER ORAL
     Route: 048
     Dates: start: 20050623
  3. FENTANYL CITRATE [Suspect]
     Indication: BREAKTHROUGH PAIN
     Dosage: 800 UG PRN BUCCAL
     Route: 002
     Dates: start: 20060929, end: 20061224
  4. SOMA [Concomitant]
  5. ANSAID (FLURBIPROFEN) [Concomitant]
  6. PERPHENAZINE [Concomitant]
  7. NAPROXEN [Concomitant]
  8. PREVACID [Concomitant]
  9. DEPO-PROVERA (PROGESTERONE) [Concomitant]
  10. XANAX [Concomitant]
  11. TOFRANIL [Concomitant]

REACTIONS (2)
  - DRUG DEPENDENCE [None]
  - DRUG WITHDRAWAL SYNDROME [None]
